FAERS Safety Report 5320221-3 (Version None)
Quarter: 2007Q2

REPORT INFORMATION
  Report Type: 
  Country: None (occurrence: None)
  Receive Date: 20070509
  Receipt Date: 20070503
  Transmission Date: 20071010
  Serious: Yes (Other)
  Sender: FDA-Public Use
  Company Number: B0463078A

PATIENT
  Age: 32 Year
  Sex: Female

DRUGS (2)
  1. ZYBAN [Suspect]
     Dosage: 150MG TWICE PER DAY
     Route: 048
     Dates: start: 20070101, end: 20070301
  2. NO CONCURRENT MEDICATION [Concomitant]

REACTIONS (3)
  - HALLUCINATION, VISUAL [None]
  - NERVOUSNESS [None]
  - PALPITATIONS [None]
